FAERS Safety Report 7128438-2 (Version None)
Quarter: 2010Q4

REPORT INFORMATION
  Report Type: 
  Country: None (occurrence: None)
  Receive Date: 20101130
  Receipt Date: 20101118
  Transmission Date: 20110411
  Serious: No
  Sender: FDA-Public Use
  Company Number: US-JNJFOC-20101107177

PATIENT
  Sex: Male
  Weight: 100.7 kg

DRUGS (11)
  1. FENTANYL-100 [Suspect]
     Indication: INTERVERTEBRAL DISC DEGENERATION
     Route: 062
  2. FENTANYL-100 [Suspect]
     Indication: PAIN
     Route: 062
  3. MORPHINE SULFATE [Concomitant]
     Indication: PAIN
     Route: 048
  4. HYDROMORPHONE HCL [Concomitant]
     Indication: PAIN
     Route: 048
  5. XANAX [Concomitant]
     Indication: ANXIETY
     Route: 048
  6. HEART MEDICATION (UNKNOWN) [Concomitant]
     Indication: ARRHYTHMIA
     Route: 048
  7. METOPROLOL [Concomitant]
     Indication: ARRHYTHMIA
     Route: 048
  8. LASIX [Concomitant]
     Indication: DIURETIC THERAPY
     Dosage: 2 TABLETS
     Route: 048
  9. DIURETIC [Concomitant]
     Indication: DIURETIC THERAPY
     Route: 048
  10. COUMADIN [Concomitant]
     Indication: CARDIAC DISORDER
     Route: 048
  11. COUMADIN [Concomitant]
     Route: 048

REACTIONS (2)
  - RASH ERYTHEMATOUS [None]
  - WRONG TECHNIQUE IN DRUG USAGE PROCESS [None]
